FAERS Safety Report 13041753 (Version 1)
Quarter: 2016Q4

REPORT INFORMATION
  Report Type: Spontaneous
  Country: US (occurrence: US)
  Receive Date: 20161219
  Receipt Date: 20161219
  Transmission Date: 20170207
  Serious: No
  Sender: FDA-Public Use
  Company Number: US-ROCHE-1301989

PATIENT
  Age: 51 Year
  Sex: Female
  Weight: 54.93 kg

DRUGS (5)
  1. ZELBORAF [Suspect]
     Active Substance: VEMURAFENIB
     Indication: THYROID CANCER
     Dosage: 4 TABS IN THE AM AND 4 TABS 12 HOURS LATER
     Route: 048
     Dates: start: 20131024, end: 20131106
  2. ZANTAC [Concomitant]
     Active Substance: RANITIDINE HYDROCHLORIDE
     Route: 048
  3. MESALAMINE. [Concomitant]
     Active Substance: MESALAMINE
     Indication: CROHN^S DISEASE
     Route: 048
  4. LEVOTHYROXINE. [Concomitant]
     Active Substance: LEVOTHYROXINE
     Indication: HYPOTHYROIDISM
     Route: 048
  5. ZELBORAF [Suspect]
     Active Substance: VEMURAFENIB
     Indication: PAPILLARY THYROID CANCER
     Route: 048
     Dates: start: 20131024, end: 20131218

REACTIONS (7)
  - Skin lesion [Unknown]
  - Arthralgia [Unknown]
  - Dysgeusia [Unknown]
  - Fluid retention [Unknown]
  - Skin papilloma [Unknown]
  - Saliva altered [Unknown]
  - Acrochordon [Unknown]

NARRATIVE: CASE EVENT DATE: 20131115
